FAERS Safety Report 16481221 (Version 3)
Quarter: 2019Q3

REPORT INFORMATION
  Report Type: Spontaneous
  Country: US (occurrence: US)
  Receive Date: 20190626
  Receipt Date: 20190809
  Transmission Date: 20191004
  Serious: Yes (Hospitalization)
  Sender: FDA-Public Use
  Company Number: US-ACTELION-A-NJ2019-190793

PATIENT
  Sex: Male
  Weight: 66.67 kg

DRUGS (4)
  1. UPTRAVI [Suspect]
     Active Substance: SELEXIPAG
     Indication: PULMONARY HYPERTENSION
     Dosage: 600 MCG, BID
     Route: 048
  2. TADALAFIL. [Concomitant]
     Active Substance: TADALAFIL
  3. AMLODIPINE [Concomitant]
     Active Substance: AMLODIPINE BESYLATE
  4. LETAIRIS [Concomitant]
     Active Substance: AMBRISENTAN

REACTIONS (7)
  - Dyspnoea [Unknown]
  - Drug intolerance [Unknown]
  - Therapy change [Unknown]
  - Chest discomfort [Unknown]
  - Cardiomegaly [Unknown]
  - Fatigue [Unknown]
  - Brain natriuretic peptide increased [Unknown]
